FAERS Safety Report 25661511 (Version 5)
Quarter: 2025Q3

REPORT INFORMATION
  Report Type: Report from Study
  Country: EU (occurrence: EU)
  Receive Date: 20250808
  Receipt Date: 20250905
  Transmission Date: 20251021
  Serious: Yes (Hospitalization)
  Sender: VERITY PHARMACEUTICALS INC.
  Company Number: EU-VER-202500069

PATIENT
  Sex: Male
  Weight: 89 kg

DRUGS (5)
  1. TRIPTORELIN PAMOATE [Suspect]
     Active Substance: TRIPTORELIN PAMOATE
     Indication: Prostate cancer
     Dosage: SUSPENSION FOR INJECTION,?BATCH NO: 005391, EXPIRY DATE: APR-2026, BATCH NO: A59882, EXPIRY DATE: MA
     Route: 030
     Dates: start: 20240726
  2. ACETAMINOPHEN [Concomitant]
     Active Substance: ACETAMINOPHEN
     Route: 065
  3. Ibrandronic acid [Concomitant]
     Route: 065
  4. DEXAMETHASONE [Concomitant]
     Active Substance: DEXAMETHASONE
     Route: 065
  5. ROSUVASTATIN [Concomitant]
     Active Substance: ROSUVASTATIN
     Route: 065

REACTIONS (2)
  - Bladder disorder [Recovered/Resolved]
  - Micturition disorder [Recovered/Resolved]
